FAERS Safety Report 21961748 (Version 1)
Quarter: 2023Q1

REPORT INFORMATION
  Report Type: Spontaneous
  Country: US (occurrence: US)
  Receive Date: 20230207
  Receipt Date: 20230207
  Transmission Date: 20230417
  Serious: No
  Sender: FDA-Public Use
  Company Number: US-BRISTOL-MYERS SQUIBB COMPANY-2023-018056

PATIENT
  Age: 74 Year
  Sex: Male
  Weight: 81.65 kg

DRUGS (2)
  1. REVLIMID [Suspect]
     Active Substance: LENALIDOMIDE
     Indication: Plasma cell myeloma
     Dosage: FREQUENCY: DAILY FOR 28 DAYS, NO DAYS OFF PER HCP INSTRUCTION
     Route: 048
     Dates: start: 202206, end: 202301
  2. REVLIMID [Suspect]
     Active Substance: LENALIDOMIDE
     Indication: Fibrosis

REACTIONS (2)
  - Alanine aminotransferase increased [Unknown]
  - Haemoglobin decreased [Unknown]
